FAERS Safety Report 7770896-4 (Version None)
Quarter: 2011Q3

REPORT INFORMATION
  Report Type: 
  Country: None (occurrence: None)
  Receive Date: 20110922
  Receipt Date: 20110113
  Transmission Date: 20111222
  Serious: Yes (Hospitalization)
  Sender: FDA-Public Use
  Company Number: US-ASTRAZENECA-2011SE02444

PATIENT
  Age: 17714 Day
  Sex: Female
  Weight: 105.2 kg

DRUGS (9)
  1. ZOCOR [Concomitant]
     Route: 048
     Dates: start: 20060130
  2. RISPERDAL [Concomitant]
     Route: 048
     Dates: start: 20061231
  3. GLYBURIDE AND METFORMIN HYDROCHLORIDE [Concomitant]
     Dosage: 2.5MG/500MG
     Dates: start: 20060405
  4. RISPERDAL [Concomitant]
     Dosage: 25 MG/ 2 WEEKS
     Route: 030
     Dates: start: 20070208
  5. AVALIDE [Concomitant]
     Dosage: 25MG-300MG
     Route: 048
     Dates: start: 20070208
  6. SEROQUEL [Suspect]
     Route: 048
     Dates: start: 20040407, end: 20070104
  7. AMBIEN [Concomitant]
     Indication: SLEEP DISORDER
     Dates: start: 20061227
  8. GLIPIZIDE [Concomitant]
     Route: 048
     Dates: start: 20061227
  9. ABILIFY [Concomitant]
     Route: 048
     Dates: start: 20061227

REACTIONS (7)
  - SCHIZOPHRENIA [None]
  - HYPERCHOLESTEROLAEMIA [None]
  - VISION BLURRED [None]
  - DIABETES MELLITUS INADEQUATE CONTROL [None]
  - HYPERTENSION [None]
  - HYPERLIPIDAEMIA [None]
  - DIABETIC KETOACIDOSIS [None]
